FAERS Safety Report 6411417-8 (Version None)
Quarter: 2009Q4

REPORT INFORMATION
  Report Type: 
  Country: None (occurrence: None)
  Receive Date: 20091023
  Receipt Date: 20091015
  Transmission Date: 20100525
  Serious: Yes (Other)
  Sender: FDA-Public Use
  Company Number: BR-ELI_LILLY_AND_COMPANY-BR200910003866

PATIENT
  Sex: Male

DRUGS (2)
  1. BYETTA [Suspect]
     Indication: TYPE 2 DIABETES MELLITUS
     Dosage: 10 UG, 2/D
     Route: 058
     Dates: start: 20090701
  2. INSULIN GLARGINE [Concomitant]
     Dosage: 35 U, DAILY (1/D)
     Route: 065

REACTIONS (4)
  - BLOOD AMYLASE INCREASED [None]
  - CONSTIPATION [None]
  - LIPASE INCREASED [None]
  - OFF LABEL USE [None]
